FAERS Safety Report 4403971-2 (Version None)
Quarter: 2004Q3

REPORT INFORMATION
  Report Type: 
  Country: None (occurrence: None)
  Receive Date: 20040719
  Receipt Date: 20040712
  Transmission Date: 20050211
  Serious: Yes (Other)
  Sender: FDA-Public Use
  Company Number: 2003-07-3311

PATIENT
  Age: 25 Year
  Sex: Female

DRUGS (4)
  1. RIBAVIRIN [Suspect]
     Indication: SEVERE ACUTE RESPIRATORY SYNDROME
     Dosage: 2 GM QD ORAL
     Route: 048
     Dates: start: 20030101, end: 20030403
  2. VIRAZOLE [Suspect]
     Indication: SEVERE ACUTE RESPIRATORY SYNDROME
     Dosage: SEE IMAGE
     Route: 042
     Dates: start: 20030330, end: 20030403
  3. VIRAZOLE [Suspect]
     Indication: SEVERE ACUTE RESPIRATORY SYNDROME
     Dosage: SEE IMAGE
     Route: 042
     Dates: end: 20030403
  4. LEVOFLOXACIN [Suspect]
     Indication: SEVERE ACUTE RESPIRATORY SYNDROME
     Dosage: 500 MG Q24H ORAL
     Route: 048
     Dates: start: 20030330, end: 20030403

REACTIONS (4)
  - BLOOD LACTATE DEHYDROGENASE INCREASED [None]
  - DYSPEPSIA [None]
  - HYPOCALCAEMIA [None]
  - NAUSEA [None]
